FAERS Safety Report 19526404 (Version 1)
Quarter: 2021Q3

REPORT INFORMATION
  Report Type: Spontaneous
  Country: US (occurrence: US)
  Receive Date: 20210713
  Receipt Date: 20210713
  Transmission Date: 20211014
  Serious: No
  Sender: FDA-Public Use
  Company Number: None

PATIENT
  Sex: Female

DRUGS (9)
  1. FOLLISTIM [Suspect]
     Active Substance: FOLLITROPIN
  2. LEUPROLIDE [Suspect]
     Active Substance: LEUPROLIDE
  3. ESTRADIOL TRANSDERMAL SYSTEM [Suspect]
     Active Substance: ESTRADIOL
  4. MINVELLE [Concomitant]
  5. ESTRADIOL. [Suspect]
     Active Substance: ESTRADIOL
  6. PROGESTERONE 50MG/ML MDV 10ML [Suspect]
     Active Substance: PROGESTERONE
     Indication: INFERTILITY FEMALE
     Dosage: ?          OTHER ROUTE:IM?WHEN INSTRUCTED?
     Route: 030
     Dates: start: 20210511
  7. MENOPUR [Suspect]
     Active Substance: FOLLITROPIN\LUTEINIZING HORMONE
  8. PROGESTERONE SUPPOSITORY [Concomitant]
  9. GANIRELIX [BRAND] [Concomitant]

REACTIONS (1)
  - Drug hypersensitivity [None]
